FAERS Safety Report 6837940-X (Version None)
Quarter: 2010Q3

REPORT INFORMATION
  Report Type: 
  Country: None (occurrence: None)
  Receive Date: 20100713
  Receipt Date: 20070527
  Transmission Date: 20110219
  Serious: Yes (Other)
  Sender: FDA-Public Use
  Company Number: US-PFIZER INC-2007043714

PATIENT
  Sex: Female
  Weight: 57.3 kg

DRUGS (4)
  1. CHANTIX [Suspect]
     Indication: EX-TOBACCO USER
     Dates: start: 20070523
  2. VALIUM [Concomitant]
     Indication: INSOMNIA
  3. TRAZODONE HYDROCHLORIDE [Concomitant]
     Indication: INSOMNIA
  4. ULTRAM [Concomitant]

REACTIONS (1)
  - BACK PAIN [None]
